FAERS Safety Report 4431987-9 (Version None)
Quarter: 2004Q3

REPORT INFORMATION
  Report Type: 
  Country: None (occurrence: None)
  Receive Date: 20040819
  Receipt Date: 20040805
  Transmission Date: 20050211
  Serious: Yes (Other)
  Sender: FDA-Public Use
  Company Number: 1781-060

PATIENT
  Age: 74 Year
  Sex: Male
  Weight: 57.2 kg

DRUGS (1)
  1. VENOFER [Suspect]
     Dosage: 100 MG IV ONCE
     Route: 042
     Dates: start: 20040729

REACTIONS (3)
  - OFF LABEL USE [None]
  - PERITONITIS [None]
  - WHITE BLOOD CELL COUNT INCREASED [None]
